FAERS Safety Report 25111518 (Version 1)
Quarter: 2025Q1

REPORT INFORMATION
  Report Type: Spontaneous
  Country: US (occurrence: US)
  Receive Date: 20250324
  Receipt Date: 20250324
  Transmission Date: 20250409
  Serious: Yes (Other)
  Sender: MYLAN
  Company Number: US-MYLANLABS-2025M1024323

PATIENT
  Age: 93 Year
  Sex: Female
  Weight: 69.4 kg

DRUGS (8)
  1. DILANTIN [Suspect]
     Active Substance: PHENYTOIN
     Indication: Seizure
     Dosage: 200 MILLIGRAM, BID (100 MG IN THE MORNING AND 100 MG AT NIGHT)
     Dates: start: 1997
  2. DILANTIN [Suspect]
     Active Substance: PHENYTOIN
     Dosage: 200 MILLIGRAM, BID (100 MG IN THE MORNING AND 100 MG AT NIGHT)
     Route: 048
     Dates: start: 1997
  3. DILANTIN [Suspect]
     Active Substance: PHENYTOIN
     Dosage: 200 MILLIGRAM, BID (100 MG IN THE MORNING AND 100 MG AT NIGHT)
     Route: 048
     Dates: start: 1997
  4. DILANTIN [Suspect]
     Active Substance: PHENYTOIN
     Dosage: 200 MILLIGRAM, BID (100 MG IN THE MORNING AND 100 MG AT NIGHT)
     Dates: start: 1997
  5. LEVOTHYROXINE [Concomitant]
     Active Substance: LEVOTHYROXINE
     Indication: Thyroid disorder
     Dosage: 1 DOSAGE FORM, QD (1 TABLET BY MOUTH DAILY AS DIRECTED)
  6. LEVOTHYROXINE [Concomitant]
     Active Substance: LEVOTHYROXINE
     Dosage: 1 DOSAGE FORM, QD (1 TABLET BY MOUTH DAILY AS DIRECTED)
     Route: 048
  7. LEVOTHYROXINE [Concomitant]
     Active Substance: LEVOTHYROXINE
     Dosage: 1 DOSAGE FORM, QD (1 TABLET BY MOUTH DAILY AS DIRECTED)
     Route: 048
  8. LEVOTHYROXINE [Concomitant]
     Active Substance: LEVOTHYROXINE
     Dosage: 1 DOSAGE FORM, QD (1 TABLET BY MOUTH DAILY AS DIRECTED)

REACTIONS (3)
  - Partial seizures [Not Recovered/Not Resolved]
  - Product quality issue [Unknown]
  - Product substitution issue [Unknown]

NARRATIVE: CASE EVENT DATE: 20250301
